FAERS Safety Report 19750848 (Version 2)
Quarter: 2021Q3

REPORT INFORMATION
  Report Type: Spontaneous
  Country: IN (occurrence: IN)
  Receive Date: 20210826
  Receipt Date: 20210902
  Transmission Date: 20211014
  Serious: Yes (Death)
  Sender: FDA-Public Use
  Company Number: IN-PFIZER INC-2019122971

PATIENT
  Age: 74 Year
  Sex: Female

DRUGS (3)
  1. LETROZOLE. [Concomitant]
     Active Substance: LETROZOLE
     Dosage: 2.5 MG, 1X/DAY
  2. PALBACE [Suspect]
     Active Substance: PALBOCICLIB
     Indication: BREAST CANCER METASTATIC
     Dosage: 125 MG, 1X/DAY
     Route: 048
     Dates: start: 20180318
  3. PALBACE [Suspect]
     Active Substance: PALBOCICLIB
     Dosage: 100 MG, 1X/DAY
     Route: 048
     Dates: start: 20180326

REACTIONS (17)
  - Platelet count decreased [Recovered/Resolved]
  - Blood alkaline phosphatase decreased [Unknown]
  - Blood creatinine decreased [Unknown]
  - Mean cell haemoglobin increased [Unknown]
  - Blood bilirubin decreased [Unknown]
  - Hepatic steatosis [Unknown]
  - Red blood cell count decreased [Unknown]
  - Haematocrit decreased [Unknown]
  - Red cell distribution width increased [Unknown]
  - Vitamin D decreased [Unknown]
  - Neoplasm progression [Unknown]
  - Neoplasm progression [Fatal]
  - Peripheral swelling [Unknown]
  - Renal cyst [Unknown]
  - White blood cell count decreased [Unknown]
  - Haemoglobin decreased [Unknown]
  - Nephropathy [Unknown]

NARRATIVE: CASE EVENT DATE: 20190215
